FAERS Safety Report 6288679-3 (Version None)
Quarter: 2009Q3

REPORT INFORMATION
  Report Type: 
  Country: None (occurrence: None)
  Receive Date: 20090727
  Receipt Date: 20090716
  Transmission Date: 20100115
  Serious: Yes (Other)
  Sender: FDA-Public Use
  Company Number: 2009AL004771

PATIENT
  Age: 51 Year
  Sex: Female

DRUGS (11)
  1. MIRTAZAPINE [Suspect]
     Indication: DEPRESSION
     Dosage: 15 MG; PO
     Route: 048
     Dates: start: 20090423, end: 20090618
  2. GABAPENTIN [Concomitant]
  3. LISINOPRIL [Concomitant]
  4. ATENOLOL [Concomitant]
  5. ACETYLSALICYLIC ACID [Concomitant]
  6. ATORVASTATIN [Concomitant]
  7. TRAMADOL [Concomitant]
  8. AMLODIPINE [Concomitant]
  9. PARACETAMOL [Concomitant]
  10. NUVELLE [Concomitant]
  11. OMEPRAZOLE [Concomitant]

REACTIONS (2)
  - OEDEMA [None]
  - PROTEINURIA [None]
